FAERS Safety Report 14719726 (Version 4)
Quarter: 2018Q2

REPORT INFORMATION
  Report Type: Report from Study
  Country: US (occurrence: US)
  Receive Date: 20180405
  Receipt Date: 20180426
  Transmission Date: 20180711
  Serious: No
  Sender: FDA-Public Use
  Company Number: US-AMGEN-USASL2018043840

PATIENT
  Age: 64 Year
  Sex: Female
  Weight: 95.69 kg

DRUGS (4)
  1. ENBREL [Suspect]
     Active Substance: ETANERCEPT
     Indication: RHEUMATOID ARTHRITIS
     Dosage: 50 MG, QWK
     Route: 058
     Dates: start: 201712
  2. OTREXUP [Suspect]
     Active Substance: METHOTREXATE
     Dosage: 120 MG, QWK (INJECTION)
     Route: 065
     Dates: start: 2017
  3. DICLOFENAC [Concomitant]
     Active Substance: DICLOFENAC
     Dosage: 75 MG, BID
     Dates: start: 2017
  4. OTREXUP [Suspect]
     Active Substance: METHOTREXATE
     Indication: RHEUMATOID ARTHRITIS
     Dosage: UNK (PILLS)
     Route: 065

REACTIONS (3)
  - Drug effect incomplete [Unknown]
  - Nausea [Unknown]
  - Nervousness [Unknown]
